FAERS Safety Report 24298457 (Version 3)
Quarter: 2025Q3

REPORT INFORMATION
  Report Type: Spontaneous
  Country: EU (occurrence: EU)
  Receive Date: 20240909
  Receipt Date: 20250810
  Transmission Date: 20251021
  Serious: Yes (Hospitalization, Other)
  Sender: ALEXION PHARMACEUTICALS
  Company Number: None

PATIENT
  Age: 80 Year
  Sex: Male
  Weight: 85 kg

DRUGS (10)
  1. ULTOMIRIS [Suspect]
     Active Substance: RAVULIZUMAB-CWVZ
     Indication: Paroxysmal nocturnal haemoglobinuria
     Route: 065
  2. PANTOPRAZOLE SODIUM [Concomitant]
     Active Substance: PANTOPRAZOLE SODIUM
     Indication: Product used for unknown indication
     Route: 065
  3. Acetylsalicylzuur actavis [Concomitant]
     Indication: Product used for unknown indication
     Route: 065
  4. CIPROFLOXACIN HYDROCHLORIDE [Concomitant]
     Active Substance: CIPROFLOXACIN HYDROCHLORIDE
     Indication: Product used for unknown indication
     Route: 065
  5. Foliumzuur actavis [Concomitant]
     Indication: Product used for unknown indication
     Route: 065
  6. Felodipine Actavis [Concomitant]
     Indication: Product used for unknown indication
     Route: 065
  7. HYPROMELLOSES [Concomitant]
     Active Substance: HYPROMELLOSES
     Indication: Product used for unknown indication
     Route: 065
  8. CALCIUM CARBIMIDE [Concomitant]
     Active Substance: CALCIUM CARBIMIDE
     Indication: Product used for unknown indication
     Route: 065
  9. Colecalciferocaps [Concomitant]
     Indication: Product used for unknown indication
     Route: 065
  10. PERINDOPRIL [Concomitant]
     Active Substance: PERINDOPRIL
     Indication: Product used for unknown indication
     Route: 065

REACTIONS (1)
  - Streptococcal bacteraemia [Recovering/Resolving]
